FAERS Safety Report 21812345 (Version 5)
Quarter: 2023Q1

REPORT INFORMATION
  Report Type: Report from Study
  Country: JP (occurrence: JP)
  Receive Date: 20230103
  Receipt Date: 20230125
  Transmission Date: 20230418
  Serious: Yes (Hospitalization, Other)
  Sender: FDA-Public Use
  Company Number: JP-BoehringerIngelheim-2022-BI-210026

PATIENT
  Age: 63 Year
  Sex: Male
  Weight: 71.8 kg

DRUGS (1)
  1. EMPAGLIFLOZIN [Suspect]
     Active Substance: EMPAGLIFLOZIN
     Indication: Chronic kidney disease
     Dosage: LAST ADMINISTRATION DATE BEFORE THE EVENT: 23 DEC 2022
     Route: 048
     Dates: start: 20221219, end: 20221224

REACTIONS (1)
  - Lacunar infarction [Recovered/Resolved with Sequelae]

NARRATIVE: CASE EVENT DATE: 20221223
